FAERS Safety Report 22202544 (Version 3)
Quarter: 2023Q2

REPORT INFORMATION
  Report Type: Spontaneous
  Country: US (occurrence: US)
  Receive Date: 20230412
  Receipt Date: 20230620
  Transmission Date: 20230721
  Serious: No
  Sender: FDA-Public Use
  Company Number: US-PFIZER INC-PV202200106252

PATIENT
  Age: 80 Year
  Sex: Female
  Weight: 49.887 kg

DRUGS (2)
  1. IBRANCE [Suspect]
     Active Substance: PALBOCICLIB
     Indication: Ovarian cancer
     Dosage: 125 MG, CYCLIC(DAILY DAYS1-21 OF 28DAY CYCLE; TAKE WHOLE W/ WATER, W/ OR W/ FOOD, SAME EACH DAY)
     Route: 048
     Dates: start: 202209
  2. FULVESTRANT [Concomitant]
     Active Substance: FULVESTRANT
     Dosage: UNK, MONTHLY
     Dates: start: 202209

REACTIONS (5)
  - Fatigue [Unknown]
  - Decreased appetite [Unknown]
  - Feeling cold [Unknown]
  - Increased tendency to bruise [Unknown]
  - Off label use [Unknown]

NARRATIVE: CASE EVENT DATE: 20220901
